FAERS Safety Report 8524327-7 (Version None)
Quarter: 2012Q3

REPORT INFORMATION
  Report Type: 
  Country: None (occurrence: None)
  Receive Date: 20120720
  Receipt Date: 20120713
  Transmission Date: 20120928
  Serious: No
  Sender: FDA-Public Use
  Company Number: US-B.I. PHARMACEUTICALS,INC./RIDGEFIELD-2012-BP-15663BP

PATIENT
  Sex: Male
  Weight: 97.7 kg

DRUGS (4)
  1. FENOFIBRATE [Concomitant]
  2. FLOMAX [Suspect]
  3. LISINOPRIL [Concomitant]
  4. SIMVASTATIN [Concomitant]

REACTIONS (1)
  - FLATULENCE [None]
